FAERS Safety Report 15276063 (Version 1)
Quarter: 2018Q3

REPORT INFORMATION
  Report Type: Spontaneous
  Country: US (occurrence: US)
  Receive Date: 20180727
  Receipt Date: 20180727
  Transmission Date: 20181010
  Serious: Yes (Hospitalization)
  Sender: FDA-Public Use
  Company Number: None

PATIENT
  Age: 62 Year
  Sex: Male

DRUGS (7)
  1. VANCOMYCIN [Suspect]
     Active Substance: VANCOMYCIN
     Route: 042
     Dates: start: 20180404, end: 20180503
  2. LISINOPRIL. [Concomitant]
     Active Substance: LISINOPRIL
  3. ENOXAPARIN [Concomitant]
     Active Substance: ENOXAPARIN
  4. AMPICILLIN/SULBACTAM [Suspect]
     Active Substance: AMPICILLIN SODIUM\SULBACTAM SODIUM
     Indication: ABSCESS
     Route: 042
     Dates: start: 20180404, end: 20180503
  5. NYSTATIN ORAL LIQUID [Concomitant]
     Active Substance: NYSTATIN
  6. AMPICILLIN/SULBACTAM [Concomitant]
     Active Substance: AMPICILLIN SODIUM\SULBACTAM SODIUM
  7. VANCOMYCIN [Concomitant]
     Active Substance: VANCOMYCIN

REACTIONS (4)
  - Eosinophilia [None]
  - Rash pruritic [None]
  - Drug eruption [None]
  - Rash [None]

NARRATIVE: CASE EVENT DATE: 20180503
